FAERS Safety Report 5695918-6 (Version None)
Quarter: 2008Q2

REPORT INFORMATION
  Report Type: 
  Country: None (occurrence: None)
  Receive Date: 20080407
  Receipt Date: 20080403
  Transmission Date: 20081010
  Serious: Yes (Hospitalization)
  Sender: FDA-Public Use
  Company Number: A0716395A

PATIENT
  Age: 48 Year
  Sex: Female

DRUGS (2)
  1. ALLI [Suspect]
     Indication: DRUG USE FOR UNKNOWN INDICATION
     Dates: start: 20080107, end: 20080310
  2. NO CONCURRENT MEDICATION [Concomitant]

REACTIONS (11)
  - ABDOMINAL PAIN UPPER [None]
  - DEHYDRATION [None]
  - DIARRHOEA [None]
  - FAECES DISCOLOURED [None]
  - GASTROINTESTINAL DISORDER [None]
  - GASTROINTESTINAL INFECTION [None]
  - MALAISE [None]
  - PYREXIA [None]
  - STEATORRHOEA [None]
  - STOMACH DISCOMFORT [None]
  - VOMITING [None]
